FAERS Safety Report 4560645-5 (Version None)
Quarter: 2005Q1

REPORT INFORMATION
  Report Type: 
  Country: None (occurrence: None)
  Receive Date: 20050121
  Receipt Date: 20050114
  Transmission Date: 20050727
  Serious: Yes (Other)
  Sender: FDA-Public Use
  Company Number: 2005-01-0926

PATIENT
  Age: 45 Year
  Sex: Male

DRUGS (1)
  1. CLARINEX [Suspect]
     Indication: RESPIRATORY TRACT IRRITATION
     Dosage: 5 MG QD ORAL
     Route: 048

REACTIONS (1)
  - VITREOUS FLOATERS [None]
